FAERS Safety Report 5485255-7 (Version None)
Quarter: 2007Q4

REPORT INFORMATION
  Report Type: 
  Country: None (occurrence: None)
  Receive Date: 20071010
  Receipt Date: 20071010
  Transmission Date: 20080405
  Serious: Yes (Other)
  Sender: FDA-Public Use
  Company Number: None

PATIENT
  Sex: Female
  Weight: 60.19 kg

DRUGS (1)
  1. OXALIPLATIN [Suspect]

REACTIONS (6)
  - FLUSHING [None]
  - INFUSION RELATED REACTION [None]
  - PALMAR ERYTHEMA [None]
  - PRURITUS [None]
  - SENSORY DISTURBANCE [None]
  - THROAT IRRITATION [None]
